FAERS Safety Report 18806662 (Version 1)
Quarter: 2021Q1

REPORT INFORMATION
  Report Type: Spontaneous
  Country: US (occurrence: US)
  Receive Date: 20210129
  Receipt Date: 20210129
  Transmission Date: 20210419
  Serious: No
  Sender: FDA-Public Use
  Company Number: US-009507513-2101USA012017

PATIENT
  Sex: Female

DRUGS (2)
  1. KLOR?CON [Suspect]
     Active Substance: POTASSIUM CHLORIDE
     Dosage: UNK
  2. FOSAMAX [Suspect]
     Active Substance: ALENDRONATE SODIUM
     Dosage: UNK
     Route: 048

REACTIONS (1)
  - Back pain [Recovered/Resolved]
